FAERS Safety Report 4504646-1 (Version None)
Quarter: 2004Q4

REPORT INFORMATION
  Report Type: 
  Country: None (occurrence: None)
  Receive Date: 20041116
  Receipt Date: 20041104
  Transmission Date: 20050328
  Serious: Yes (Other)
  Sender: FDA-Public Use
  Company Number: 2004005002

PATIENT
  Age: 21 Year
  Sex: Female
  Weight: 45 kg

DRUGS (5)
  1. TAHOR (ATORVASTATIN) [Suspect]
     Indication: TYPE IIA HYPERLIPIDAEMIA
     Dosage: 10 MG (DAILY), ORAL
     Route: 048
     Dates: start: 20031205, end: 20040120
  2. DIANE (ETHINYLESTRADIOL, CYPROTERONE ACETATE) [Concomitant]
     Indication: CONTRACEPTION
     Dosage: ORAL
     Route: 048
     Dates: start: 20030119, end: 20040120
  3. PARACETAMOL (PARACETAMOL) [Concomitant]
  4. ALL OTHER THERAPEUTIC PRODUCTS (ALL OTHER THERAPEUTIC PRODUCTS) [Concomitant]
  5. ATEPADENE (ADENOSINE PHOSPHATE, SODIUM SALT, DEOXYRIBONUCLEIC ACID) [Concomitant]

REACTIONS (7)
  - ABDOMINAL PAIN [None]
  - BACK PAIN [None]
  - DRUG EXPOSURE DURING PREGNANCY [None]
  - DRUG INTERACTION [None]
  - METRORRHAGIA [None]
  - MUSCLE FATIGUE [None]
  - PREGNANCY ON ORAL CONTRACEPTIVE [None]
